FAERS Safety Report 5974820-6 (Version None)
Quarter: 2008Q4

REPORT INFORMATION
  Report Type: 
  Country: None (occurrence: None)
  Receive Date: 20081201
  Receipt Date: 20081124
  Transmission Date: 20090506
  Serious: Yes (Other)
  Sender: FDA-Public Use
  Company Number: ZA-PFIZER INC-2008100599

PATIENT
  Age: 25 Year
  Sex: Female

DRUGS (2)
  1. GEODON [Suspect]
     Indication: DEPRESSION
     Route: 048
  2. GEODON [Suspect]
     Indication: BIPOLAR DISORDER

REACTIONS (2)
  - SEDATION [None]
  - WEIGHT DECREASED [None]
